FAERS Safety Report 24306657 (Version 1)
Quarter: 2024Q3

REPORT INFORMATION
  Report Type: Spontaneous
  Country: US (occurrence: US)
  Receive Date: 20240911
  Receipt Date: 20240911
  Transmission Date: 20241016
  Serious: Yes (Other)
  Sender: MYLAN
  Company Number: US-MYLANLABS-2024M1082363

PATIENT
  Age: 70 Year
  Sex: Male

DRUGS (5)
  1. DOXORUBICIN [Suspect]
     Active Substance: DOXORUBICIN
     Indication: Follicular lymphoma
     Dosage: UNK
     Route: 065
  2. POLATUZUMAB VEDOTIN [Concomitant]
     Active Substance: POLATUZUMAB VEDOTIN
     Indication: Follicular lymphoma
     Dosage: UNK UNK, CYCLE {RECEIVED TOTAL 6 CYCLES}
     Route: 065
  3. RITUXIMAB [Concomitant]
     Active Substance: RITUXIMAB
     Indication: Follicular lymphoma
     Dosage: UNK UNK, CYCLE {RECEIVED TOTAL 6 CYCLES}
     Route: 065
  4. CYCLOPHOSPHAMIDE [Concomitant]
     Active Substance: CYCLOPHOSPHAMIDE
     Indication: Follicular lymphoma
     Dosage: UNK UNK, CYCLE {RECEIVED TOTAL 6 CYCLES}
     Route: 065
  5. PREDNISONE [Concomitant]
     Active Substance: PREDNISONE
     Indication: Follicular lymphoma
     Dosage: UNK UNK, CYCLE {RECEIVED TOTAL 6 CYCLES}
     Route: 065

REACTIONS (1)
  - Ejection fraction decreased [Unknown]
